FAERS Safety Report 5074549-5 (Version None)
Quarter: 2006Q3

REPORT INFORMATION
  Report Type: 
  Country: None (occurrence: None)
  Receive Date: 20060803
  Receipt Date: 20060725
  Transmission Date: 20061208
  Serious: Yes (Hospitalization)
  Sender: FDA-Public Use
  Company Number: 234714K06USA

PATIENT
  Age: 42 Year
  Sex: Female

DRUGS (4)
  1. REBIF [Suspect]
     Indication: MULTIPLE SCLEROSIS
     Dosage: 44 MCG, 3 IN 1 WEEKS, SUBCUTANEOUS
     Route: 058
     Dates: start: 20060308, end: 20060707
  2. DARVOCET [Concomitant]
  3. XANAX [Concomitant]
  4. ANTIVERT [Concomitant]

REACTIONS (9)
  - BACTERAEMIA [None]
  - FATIGUE [None]
  - HYPERHIDROSIS [None]
  - INTERVERTEBRAL DISC PROTRUSION [None]
  - KIDNEY INFECTION [None]
  - MOOD SWINGS [None]
  - NERVE COMPRESSION [None]
  - PAIN [None]
  - URINARY TRACT INFECTION [None]
